FAERS Safety Report 14152603 (Version 1)
Quarter: 2017Q4

REPORT INFORMATION
  Report Type: Spontaneous
  Country: US (occurrence: US)
  Receive Date: 20171102
  Receipt Date: 20171102
  Transmission Date: 20180321
  Serious: Yes (Other)
  Sender: FDA-Public Use
  Company Number: None

PATIENT
  Age: 70 Year
  Sex: Male
  Weight: 67.5 kg

DRUGS (6)
  1. LOW DOSE ASPIRIN [Concomitant]
     Active Substance: ASPIRIN
  2. CIALIS [Concomitant]
     Active Substance: TADALAFIL
  3. LISINOPRIL. [Suspect]
     Active Substance: LISINOPRIL
     Indication: HYPERTENSION
     Route: 048
     Dates: start: 20171025, end: 20171101
  4. ULORIC [Concomitant]
     Active Substance: FEBUXOSTAT
  5. VITAMIN D3 [Concomitant]
     Active Substance: CHOLECALCIFEROL
  6. STATIN [Concomitant]
     Active Substance: UNSPECIFIED INGREDIENT

REACTIONS (2)
  - Product substitution issue [None]
  - General symptom [None]

NARRATIVE: CASE EVENT DATE: 20171025
